FAERS Safety Report 11236106 (Version 2)
Quarter: 2015Q3

REPORT INFORMATION
  Report Type: Report from Study
  Country: US (occurrence: US)
  Receive Date: 20150702
  Receipt Date: 20150824
  Transmission Date: 20151125
  Serious: Yes (Death, Other)
  Sender: FDA-Public Use
  Company Number: US-GILEAD-2015-0161164

PATIENT
  Age: 79 Year
  Sex: Female

DRUGS (2)
  1. AMBRISENTAN [Suspect]
     Active Substance: AMBRISENTAN
     Indication: PULMONARY HYPERTENSION
     Dosage: 10 MG, UNK
     Route: 065
     Dates: start: 20100709
  2. AMBRISENTAN [Suspect]
     Active Substance: AMBRISENTAN
     Indication: CHRONIC OBSTRUCTIVE PULMONARY DISEASE

REACTIONS (2)
  - Acute respiratory failure [Fatal]
  - Pulmonary hypertension [Fatal]

NARRATIVE: CASE EVENT DATE: 201506
